FAERS Safety Report 8540458-X (Version None)
Quarter: 2012Q3

REPORT INFORMATION
  Report Type: 
  Country: None (occurrence: None)
  Receive Date: 20120726
  Receipt Date: 20110718
  Transmission Date: 20120928
  Serious: No
  Sender: FDA-Public Use
  Company Number: US-ASTRAZENECA-2011SE43023

PATIENT
  Age: 51 Year
  Sex: Female

DRUGS (15)
  1. ZYPREXA [Concomitant]
     Dates: start: 20030211
  2. TOPROL-XL [Concomitant]
     Dates: start: 20040316
  3. CLONIDINE [Concomitant]
     Dates: start: 20030221
  4. TOPAMAX [Concomitant]
     Dates: start: 20030307
  5. SEROQUEL [Suspect]
     Route: 048
     Dates: start: 20030307
  6. INDAPAMIDE [Concomitant]
     Dates: start: 20030221
  7. NEURONTIN [Concomitant]
     Dates: start: 20030211
  8. EFFEXOR XR [Concomitant]
     Dates: start: 20030411
  9. TENORMIN [Concomitant]
     Dates: start: 20050130
  10. MAXZIDE [Concomitant]
     Dates: start: 20050130
  11. ZOLOFT [Concomitant]
     Dates: start: 20030211
  12. BENZTROPINE MESYLATE [Concomitant]
     Dates: start: 20030211
  13. NORVASC [Concomitant]
     Dates: start: 20050130
  14. XENICAL [Concomitant]
     Indication: WEIGHT DECREASED
     Dosage: AS NEEDED
     Dates: start: 20050130
  15. EFFEXOR XR [Concomitant]
     Dates: start: 20030307

REACTIONS (5)
  - HYPERTENSION [None]
  - DIZZINESS [None]
  - DEPRESSION [None]
  - OBESITY [None]
  - HEADACHE [None]
